FAERS Safety Report 8920760 (Version 3)
Quarter: 2012Q4

REPORT INFORMATION
  Report Type: Report from Study
  Country: CA (occurrence: CA)
  Receive Date: 20121122
  Receipt Date: 20121226
  Transmission Date: 20130627
  Serious: Yes (Other)
  Sender: FDA-Public Use
  Company Number: CA-ROCHE-1122227

PATIENT
  Age: 56 Year
  Sex: Male
  Weight: 90 kg

DRUGS (9)
  1. BEVACIZUMAB [Suspect]
     Indication: GLIOBLASTOMA
     Route: 042
     Dates: start: 20120109
  2. BEVACIZUMAB [Suspect]
     Route: 042
     Dates: start: 20120307
  3. BEVACIZUMAB [Suspect]
     Route: 042
     Dates: start: 20121018
  4. COVERSYL [Concomitant]
     Route: 065
  5. DEXAMETHASONE [Concomitant]
     Route: 065
  6. DIPHENHYDRAMINE HCL [Concomitant]
     Indication: PREMEDICATION
     Route: 048
     Dates: start: 20120906, end: 20120906
  7. DIPHENHYDRAMINE HCL [Concomitant]
     Dosage: once
     Route: 048
     Dates: start: 20120109
  8. METHYLPREDNISOLONE [Concomitant]
     Indication: PREMEDICATION
     Route: 042
     Dates: start: 20120906, end: 20120906
  9. METHYLPREDNISOLONE [Concomitant]
     Dosage: once
     Route: 042
     Dates: start: 20120109

REACTIONS (15)
  - White blood cell count increased [Unknown]
  - Neutrophil count increased [Unknown]
  - Monocyte count increased [Not Recovered/Not Resolved]
  - Mean cell volume increased [Not Recovered/Not Resolved]
  - Mean cell haemoglobin [Unknown]
  - Fatigue [Not Recovered/Not Resolved]
  - Sensation of heaviness [Not Recovered/Not Resolved]
  - Fatigue [Not Recovered/Not Resolved]
  - Neoplasm [Not Recovered/Not Resolved]
  - Motor dysfunction [Not Recovered/Not Resolved]
  - Fall [Unknown]
  - Bone contusion [Recovering/Resolving]
  - Mobility decreased [Not Recovered/Not Resolved]
  - Memory impairment [Not Recovered/Not Resolved]
  - Decreased appetite [Not Recovered/Not Resolved]
